FAERS Safety Report 8264931-7 (Version None)
Quarter: 2012Q2

REPORT INFORMATION
  Report Type: 
  Country: None (occurrence: None)
  Receive Date: 20120404
  Receipt Date: 20120323
  Transmission Date: 20120825
  Serious: Yes (Life-Threatening, Hospitalization)
  Sender: FDA-Public Use
  Company Number: WAES 1203USA01098

PATIENT
  Age: 51 Year
  Sex: Male
  Weight: 84.8226 kg

DRUGS (3)
  1. VORINOSTAT [Concomitant]
  2. TEMODAR [Concomitant]
  3. DECADRON [Suspect]
     Indication: GLIOBLASTOMA MULTIFORME
     Dosage: UNK/UNK/PO
     Route: 048

REACTIONS (5)
  - SUICIDAL IDEATION [None]
  - DEPRESSION [None]
  - REFUSAL OF TREATMENT BY PATIENT [None]
  - ANXIETY [None]
  - SUICIDE ATTEMPT [None]
